FAERS Safety Report 6444404-4 (Version None)
Quarter: 2009Q4

REPORT INFORMATION
  Report Type: 
  Country: None (occurrence: None)
  Receive Date: 20091118
  Receipt Date: 20091106
  Transmission Date: 20100525
  Serious: Yes (Disabling)
  Sender: FDA-Public Use
  Company Number: JP-ELI_LILLY_AND_COMPANY-JP200910006060

PATIENT
  Sex: Female
  Weight: 50 kg

DRUGS (3)
  1. EVISTA [Suspect]
     Indication: OSTEOPOROSIS
     Dosage: 60 MG, DAILY (1/D)
     Route: 048
     Dates: end: 20091019
  2. LOXONIN [Concomitant]
     Route: 048
  3. MUCOSTA [Concomitant]
     Route: 048

REACTIONS (1)
  - CEREBRAL INFARCTION [None]
